FAERS Safety Report 15515036 (Version 1)
Quarter: 2018Q4

REPORT INFORMATION
  Report Type: Spontaneous
  Country: FR (occurrence: FR)
  Receive Date: 20181017
  Receipt Date: 20181017
  Transmission Date: 20190205
  Serious: Yes (Hospitalization)
  Sender: FDA-Public Use
  Company Number: FR-TEVA-2018-FR-964847

PATIENT
  Age: 89 Year
  Sex: Male

DRUGS (4)
  1. XATRAL LP 10 MG, COMPRIM? ? LIB?RATION PROLONG?E [Suspect]
     Active Substance: ALFUZOSIN
     Indication: PROSTATE CANCER
     Dosage: 10 MILLIGRAM DAILY;
     Route: 048
     Dates: start: 20180711, end: 20180802
  2. VANCOMYCINE BASE [Suspect]
     Active Substance: VANCOMYCIN
     Dosage: 1200 MILLIGRAM DAILY;
     Route: 042
     Dates: start: 20180711, end: 20180711
  3. VANCOMYCINE BASE [Suspect]
     Active Substance: VANCOMYCIN
     Indication: SEPSIS
     Dosage: 1250 MILLIGRAM DAILY;
     Route: 042
     Dates: start: 20180730, end: 20180802
  4. VANCOMYCINE BASE [Suspect]
     Active Substance: VANCOMYCIN
     Indication: SEPSIS
     Dosage: 2000 MILLIGRAM DAILY;
     Route: 042
     Dates: start: 20180712, end: 20180729

REACTIONS (2)
  - Rash maculo-papular [Recovered/Resolved]
  - Eosinophilia [Recovered/Resolved]

NARRATIVE: CASE EVENT DATE: 20180801
